FAERS Safety Report 23010462 (Version 2)
Quarter: 2023Q4

REPORT INFORMATION
  Report Type: Report from Study
  Country: US (occurrence: US)
  Receive Date: 20230929
  Receipt Date: 20231120
  Transmission Date: 20240109
  Serious: Yes (Death, Hospitalization)
  Sender: FDA-Public Use
  Company Number: US-002147023-NVSC2023US211104

PATIENT
  Age: 90 Year
  Sex: Female
  Weight: 63.2 kg

DRUGS (6)
  1. ENTRESTO [Suspect]
     Active Substance: SACUBITRIL\VALSARTAN
     Indication: Product used for unknown indication
     Dosage: 1 DOSAGE FORM, BID (24/26 MG)
     Route: 048
  2. TYLENOL [Concomitant]
     Active Substance: ACETAMINOPHEN
     Indication: Product used for unknown indication
     Dosage: 650 MG, Q6H
     Route: 048
  3. LIPITOR [Concomitant]
     Active Substance: ATORVASTATIN CALCIUM
     Indication: Product used for unknown indication
     Dosage: 40 MG, QHS
     Route: 048
  4. COREG [Concomitant]
     Active Substance: CARVEDILOL
     Indication: Product used for unknown indication
     Dosage: 6.25 MG, BID
     Route: 048
  5. LASIX [Concomitant]
     Active Substance: FUROSEMIDE
     Indication: Product used for unknown indication
     Dosage: 20 MG, QMO
     Route: 048
     Dates: start: 20230913
  6. HUMALOG [Concomitant]
     Active Substance: INSULIN LISPRO
     Indication: Product used for unknown indication
     Dosage: 5 DOSAGE FORM, Q4H (2-5 UNITS)
     Route: 058

REACTIONS (10)
  - Death [Fatal]
  - Fall [Unknown]
  - Cholecystitis acute [Unknown]
  - Femur fracture [Unknown]
  - Arthralgia [Unknown]
  - Thrombocytopenia [Unknown]
  - Troponin increased [Unknown]
  - Meningioma [Unknown]
  - Musculoskeletal chest pain [Unknown]
  - Wrist fracture [Unknown]

NARRATIVE: CASE EVENT DATE: 20230913
